FAERS Safety Report 8310470 (Version 4)
Quarter: 2013Q4

REPORT INFORMATION
  Report Type: Spontaneous
  Country: US (occurrence: US)
  Receive Date: 20111223
  Receipt Date: 20131009
  Transmission Date: 20140711
  Serious: Yes (Other)
  Sender: FDA-Public Use
  Company Number: US-ROCHE-803113

PATIENT
  Age: 37 Year
  Sex: Female
  Weight: 68.1 kg

DRUGS (4)
  1. ACCUTANE [Suspect]
     Indication: ACNE
     Route: 048
  2. ACCUTANE [Suspect]
     Indication: ACNE
     Route: 048
  3. ACCUTANE [Suspect]
     Route: 048
     Dates: start: 20030910, end: 2004
  4. ACCUTANE [Suspect]
     Route: 048

REACTIONS (7)
  - Inflammatory bowel disease [Unknown]
  - Depression [Unknown]
  - Suicide attempt [Unknown]
  - Dry skin [Unknown]
  - Lip dry [Unknown]
  - Blood cholesterol increased [Unknown]
  - Blood triglycerides increased [Unknown]
